FAERS Safety Report 7691634-X (Version None)
Quarter: 2011Q3

REPORT INFORMATION
  Report Type: 
  Country: None (occurrence: None)
  Receive Date: 20110818
  Receipt Date: 20110816
  Transmission Date: 20111222
  Serious: Yes (Other)
  Sender: FDA-Public Use
  Company Number: FR-BRISTOL-MYERS SQUIBB COMPANY-15819717

PATIENT
  Age: 71 Year
  Sex: Female
  Weight: 60 kg

DRUGS (7)
  1. ZYPREXA [Concomitant]
     Indication: DEPRESSION
     Route: 048
     Dates: start: 20101227
  2. TERCIAN [Concomitant]
     Indication: ANXIETY
     Route: 048
     Dates: start: 20110111
  3. STABLON [Concomitant]
     Indication: DEPRESSION
     Route: 048
     Dates: start: 20100816
  4. ABILIFY [Suspect]
     Indication: DELUSIONAL DISORDER, UNSPECIFIED TYPE
     Dosage: 29JAN11-14MAR11 2.5MG/D 14MAR11 5MG/D
     Route: 048
     Dates: start: 20110129
  5. ABILIFY [Suspect]
     Indication: DEPRESSION
     Dosage: 29JAN11-14MAR11 2.5MG/D 14MAR11 5MG/D
     Route: 048
     Dates: start: 20110129
  6. ZYPREXA [Concomitant]
     Indication: DELUSIONAL DISORDER, UNSPECIFIED TYPE
     Route: 048
     Dates: start: 20101227
  7. LAMICTAL [Concomitant]
     Indication: DEPRESSION
     Route: 048
     Dates: start: 20110729

REACTIONS (1)
  - PICA [None]
